FAERS Safety Report 25083469 (Version 1)
Quarter: 2025Q1

REPORT INFORMATION
  Report Type: Spontaneous
  Country: US (occurrence: None)
  Receive Date: 20250314
  Receipt Date: 20250314
  Transmission Date: 20250409
  Serious: No
  Sender: FDA-CTU
  Company Number: None

PATIENT
  Sex: Female

DRUGS (1)
  1. CAPECITABINE [Suspect]
     Active Substance: CAPECITABINE
     Indication: Colon cancer
     Dosage: 300MG 2 TIMES A DAY ORAL
     Route: 048
     Dates: start: 202501

REACTIONS (6)
  - Dehydration [None]
  - Diarrhoea [None]
  - Nausea [None]
  - Decreased appetite [None]
  - Asthenia [None]
  - Fatigue [None]
